FAERS Safety Report 9990387 (Version 1)
Quarter: 2014Q1

REPORT INFORMATION
  Report Type: Report from Study
  Country: US (occurrence: US)
  Receive Date: 20140310
  Receipt Date: 20140310
  Transmission Date: 20141002
  Serious: Yes (Other)
  Sender: FDA-Public Use
  Company Number: US-ABBVIE-13P-163-1133891-00

PATIENT
  Age: 62 Year
  Sex: Male

DRUGS (1)
  1. HUMIRA [Suspect]
     Indication: CROHN^S DISEASE
     Dosage: PENDING MD ADVISE
     Route: 058
     Dates: start: 201301, end: 201306

REACTIONS (2)
  - Crohn^s disease [Unknown]
  - Fatigue [Recovered/Resolved]
